FAERS Safety Report 17736679 (Version 5)
Quarter: 2023Q2

REPORT INFORMATION
  Report Type: Spontaneous
  Country: US (occurrence: US)
  Receive Date: 20200501
  Receipt Date: 20230407
  Transmission Date: 20230721
  Serious: Yes (Hospitalization, Other)
  Sender: FDA-Public Use
  Company Number: US-GILEAD-2020-0463103

PATIENT
  Sex: Male
  Weight: 72.562 kg

DRUGS (109)
  1. ATRIPLA [Suspect]
     Active Substance: EFAVIRENZ\EMTRICITABINE\TENOFOVIR DISOPROXIL FUMARATE
     Indication: HIV infection
     Dosage: UNK
     Route: 048
     Dates: start: 2004, end: 2016
  2. ATRIPLA [Suspect]
     Active Substance: EFAVIRENZ\EMTRICITABINE\TENOFOVIR DISOPROXIL FUMARATE
     Dosage: UNK
     Route: 048
     Dates: start: 2006, end: 2018
  3. ATRIPLA [Suspect]
     Active Substance: EFAVIRENZ\EMTRICITABINE\TENOFOVIR DISOPROXIL FUMARATE
     Dosage: UNK
     Route: 048
     Dates: start: 2006, end: 201705
  4. TRUVADA [Suspect]
     Active Substance: EMTRICITABINE\TENOFOVIR DISOPROXIL FUMARATE
     Indication: HIV infection
     Dosage: UNK
     Route: 048
     Dates: start: 2004
  5. VIREAD [Suspect]
     Active Substance: TENOFOVIR DISOPROXIL FUMARATE
     Indication: HIV infection
     Dosage: UNK
     Route: 065
     Dates: start: 201003, end: 201010
  6. VIREAD [Suspect]
     Active Substance: TENOFOVIR DISOPROXIL FUMARATE
     Dosage: UNK
     Route: 065
     Dates: start: 201510, end: 201703
  7. ERYTHROPOIETIN [Concomitant]
     Active Substance: ERYTHROPOIETIN
  8. SPIRONOLACTONE [Concomitant]
     Active Substance: SPIRONOLACTONE
  9. CLONIDINE [Concomitant]
     Active Substance: CLONIDINE
  10. CARVEDILOL [Concomitant]
     Active Substance: CARVEDILOL
  11. COMBIVIR [Concomitant]
     Active Substance: LAMIVUDINE\ZIDOVUDINE
  12. EMTRIVA [Concomitant]
     Active Substance: EMTRICITABINE
  13. EPIVIR [Concomitant]
     Active Substance: LAMIVUDINE
  14. GENVOYA [Concomitant]
     Active Substance: COBICISTAT\ELVITEGRAVIR\EMTRICITABINE\TENOFOVIR ALAFENAMIDE FUMARATE
  15. NORVIR [Concomitant]
     Active Substance: RITONAVIR
  16. SUSTIVA [Concomitant]
     Active Substance: EFAVIRENZ
  17. TIVICAY [Concomitant]
     Active Substance: DOLUTEGRAVIR SODIUM
  18. TRIUMEQ [Concomitant]
     Active Substance: ABACAVIR SULFATE\DOLUTEGRAVIR SODIUM\LAMIVUDINE
  19. VIDEX [Concomitant]
     Active Substance: DIDANOSINE
  20. ZIAGEN [Concomitant]
     Active Substance: ABACAVIR SULFATE
  21. ABACAVIR [Concomitant]
     Active Substance: ABACAVIR
  22. ADVIL [Concomitant]
     Active Substance: IBUPROFEN
  23. ALPRAZOLAM [Concomitant]
     Active Substance: ALPRAZOLAM
  24. AMITRIPTYLINE [Concomitant]
     Active Substance: AMITRIPTYLINE
  25. AMLODIPINE [Concomitant]
     Active Substance: AMLODIPINE BESYLATE
  26. AMMONIUM LACTATE [Concomitant]
     Active Substance: AMMONIUM LACTATE
  27. AMOXICILLIN\CLAVULANIC ACID [Concomitant]
     Active Substance: AMOXICILLIN\CLAVULANIC ACID
  28. AMOXICILLIN [Concomitant]
     Active Substance: AMOXICILLIN
  29. ATORVASTATIN [Concomitant]
     Active Substance: ATORVASTATIN
  30. AZITHROMYCIN [Concomitant]
     Active Substance: AZITHROMYCIN
  31. BENAZEPRIL [Concomitant]
     Active Substance: BENAZEPRIL HYDROCHLORIDE
  32. BENZONATATE [Concomitant]
     Active Substance: BENZONATATE
  33. BUSPIRONE [Concomitant]
     Active Substance: BUSPIRONE HYDROCHLORIDE
  34. CARISOPRODOL [Concomitant]
     Active Substance: CARISOPRODOL
  35. CELECOXIB [Concomitant]
     Active Substance: CELECOXIB
  36. CEPHALEXIN [Concomitant]
     Active Substance: CEPHALEXIN
  37. CETIRIZINE [Concomitant]
     Active Substance: CETIRIZINE HYDROCHLORIDE
  38. CHLORDIAZEPOXIDE [Concomitant]
     Active Substance: CHLORDIAZEPOXIDE
  39. CHLORTHALIDONE [Concomitant]
     Active Substance: CHLORTHALIDONE
  40. CIPROFLOXACIN [Concomitant]
     Active Substance: CIPROFLOXACIN
  41. CLARITHROMYCIN [Concomitant]
     Active Substance: CLARITHROMYCIN
  42. CLINDAMYCIN [Concomitant]
     Active Substance: CLINDAMYCIN
  43. CLONAZEPAM [Concomitant]
     Active Substance: CLONAZEPAM
  44. COLCHICINE [Concomitant]
     Active Substance: COLCHICINE
  45. COUMADIN [Concomitant]
     Active Substance: WARFARIN SODIUM
  46. COZAAR [Concomitant]
     Active Substance: LOSARTAN POTASSIUM
  47. DICLOFENAC POTASSIUM [Concomitant]
     Active Substance: DICLOFENAC POTASSIUM
  48. DICYCLOMINE [Concomitant]
     Active Substance: DICYCLOMINE HYDROCHLORIDE
  49. DIDANOSINE [Concomitant]
     Active Substance: DIDANOSINE
  50. DOCUSATE [Concomitant]
     Active Substance: DOCUSATE
  51. LAMIVUDINE [Concomitant]
     Active Substance: LAMIVUDINE
  52. FLUCONAZOLE [Concomitant]
     Active Substance: FLUCONAZOLE
  53. FOLIC ACID [Concomitant]
     Active Substance: FOLIC ACID
  54. FUROSEMIDE [Concomitant]
     Active Substance: FUROSEMIDE
  55. GABAPENTIN [Concomitant]
     Active Substance: GABAPENTIN
  56. GAVILYTE G [Concomitant]
     Active Substance: POLYETHYLENE GLYCOL 3350\POTASSIUM CHLORIDE\SODIUM BICARBONATE\SODIUM CHLORIDE\SODIUM SULFATE
  57. HYDRALAZINE [Concomitant]
     Active Substance: HYDRALAZINE HYDROCHLORIDE
  58. HYDROCODONE [Concomitant]
     Active Substance: HYDROCODONE
  59. ACETAMINOPHEN\HYDROCODONE [Concomitant]
     Active Substance: ACETAMINOPHEN\HYDROCODONE
  60. HYZAAR [Concomitant]
     Active Substance: HYDROCHLOROTHIAZIDE\LOSARTAN POTASSIUM
  61. KETOCONAZOLE [Concomitant]
     Active Substance: KETOCONAZOLE
  62. LABETALOL [Concomitant]
     Active Substance: LABETALOL\LABETALOL HYDROCHLORIDE
  63. LAMIVUDINE [Concomitant]
     Active Substance: LAMIVUDINE
  64. LEVAQUIN [Concomitant]
     Active Substance: LEVOFLOXACIN
  65. LEVETIRACETAM [Concomitant]
     Active Substance: LEVETIRACETAM
  66. LEVOFLOXACIN [Concomitant]
     Active Substance: LEVOFLOXACIN
  67. LEXAPRO [Concomitant]
     Active Substance: ESCITALOPRAM OXALATE
  68. LIDOCAINE [Concomitant]
     Active Substance: LIDOCAINE
  69. LISINOPRIL [Concomitant]
     Active Substance: LISINOPRIL
  70. MEGESTROL ACETATE [Concomitant]
     Active Substance: MEGESTROL ACETATE
  71. MELATONIN [Concomitant]
     Active Substance: MELATONIN
  72. METOPROLOL [Concomitant]
     Active Substance: METOPROLOL
  73. METRONIDAZOLE [Concomitant]
     Active Substance: METRONIDAZOLE
  74. DIETARY SUPPLEMENT\HERBALS\MILK THISTLE [Concomitant]
     Active Substance: MILK THISTLE
  75. NAMENDA [Concomitant]
     Active Substance: MEMANTINE HYDROCHLORIDE
  76. NEOMYCIN [Concomitant]
     Active Substance: NEOMYCIN
  77. NEPHRO [Concomitant]
  78. NEVANAC [Concomitant]
     Active Substance: NEPAFENAC
  79. NIFEDICAL XL [Concomitant]
     Active Substance: NIFEDIPINE
  80. NORVASC [Concomitant]
     Active Substance: AMLODIPINE BESYLATE
  81. NYSTATIN [Concomitant]
     Active Substance: NYSTATIN
  82. Q DRYL [Concomitant]
  83. OMEPRAZOLE [Concomitant]
     Active Substance: OMEPRAZOLE
  84. OXYCODONE [Concomitant]
     Active Substance: OXYCODONE
  85. OXYCODONE/APAP [Concomitant]
     Active Substance: ACETAMINOPHEN\OXYCODONE HYDROCHLORIDE
  86. PANTOPRAZOLE [Concomitant]
     Active Substance: PANTOPRAZOLE
  87. PRAVASTATIN [Concomitant]
     Active Substance: PRAVASTATIN
  88. PREDNISONE [Concomitant]
     Active Substance: PREDNISONE
  89. PROAIR HFA [Concomitant]
     Active Substance: ALBUTEROL SULFATE
  90. PROMETHAZINE [Concomitant]
     Active Substance: PROMETHAZINE HYDROCHLORIDE
  91. ACETAMINOPHEN\PROPOXYPHENE NAPSYLATE [Concomitant]
     Active Substance: ACETAMINOPHEN\PROPOXYPHENE NAPSYLATE
  92. ASCORBIC ACID\BIOTIN\CALCIUM PANTOTHENATE\CYANOCOBALAMIN\FOLIC ACID\NI [Concomitant]
     Active Substance: ASCORBIC ACID\BIOTIN\CALCIUM PANTOTHENATE\CYANOCOBALAMIN\FOLIC ACID\NIACINAMIDE\PYRIDOXINE HYDROCHLO
  93. RENVELA [Concomitant]
     Active Substance: SEVELAMER CARBONATE
  94. SERTRALINE [Concomitant]
     Active Substance: SERTRALINE HYDROCHLORIDE
  95. SEVELAMER [Concomitant]
     Active Substance: SEVELAMER
  96. SULFAMETHOXAZOLE\TRIMETHOPRIM [Concomitant]
     Active Substance: SULFAMETHOXAZOLE\TRIMETHOPRIM
  97. SULFAMETHOXAZOLE\TRIMETHOPRIM [Concomitant]
     Active Substance: SULFAMETHOXAZOLE\TRIMETHOPRIM
  98. SPS [Concomitant]
     Active Substance: SODIUM POLYSTYRENE SULFONATE
  99. SUCRALFATE [Concomitant]
     Active Substance: SUCRALFATE
  100. SULFAMETHOXAZOLE [Concomitant]
     Active Substance: SULFAMETHOXAZOLE
  101. SUPREP BOWEL PREP [Concomitant]
     Active Substance: MAGNESIUM SULFATE\POTASSIUM SULFATE\SODIUM SULFATE
  102. TRAMADOL [Concomitant]
     Active Substance: TRAMADOL
  103. TRAZODONE [Concomitant]
     Active Substance: TRAZODONE HYDROCHLORIDE
  104. TRIAMCINOLONE [Concomitant]
     Active Substance: TRIAMCINOLONE
  105. TRIFLURIDINE [Concomitant]
     Active Substance: TRIFLURIDINE
  106. VENTOLIN HFA [Concomitant]
     Active Substance: ALBUTEROL SULFATE
  107. WARFARIN [Concomitant]
     Active Substance: WARFARIN
  108. ZOLPIDEM [Concomitant]
     Active Substance: ZOLPIDEM TARTRATE
  109. ZYPREXA [Concomitant]
     Active Substance: OLANZAPINE

REACTIONS (8)
  - End stage renal disease [Not Recovered/Not Resolved]
  - Acute kidney injury [Recovered/Resolved]
  - Chronic kidney disease [Unknown]
  - Hepatitis C [Not Recovered/Not Resolved]
  - Renal failure [Unknown]
  - Hyperkalaemia [Not Recovered/Not Resolved]
  - Hypertension [Not Recovered/Not Resolved]
  - Anaemia [Not Recovered/Not Resolved]

NARRATIVE: CASE EVENT DATE: 20170101
